FAERS Safety Report 6379635-5 (Version None)
Quarter: 2009Q3

REPORT INFORMATION
  Report Type: 
  Country: None (occurrence: None)
  Receive Date: 20090923
  Receipt Date: 20090910
  Transmission Date: 20100115
  Serious: Yes (Death, Hospitalization)
  Sender: FDA-Public Use
  Company Number: 2009AL002003

PATIENT
  Age: 50 Year
  Sex: Male
  Weight: 160.5733 kg

DRUGS (23)
  1. DIGOXIN [Suspect]
     Dosage: 0.125MG, DAILY, PO
     Route: 048
  2. CORDARONE [Concomitant]
  3. ASPIRIN [Concomitant]
  4. COREG [Concomitant]
  5. PLAVIX [Concomitant]
  6. FERO-GRAD [Concomitant]
  7. MAGOXIDE [Concomitant]
  8. FOLIC ACID [Concomitant]
  9. LASIX [Concomitant]
  10. POTASSIUM CHLORIDE [Concomitant]
  11. PREVACID [Concomitant]
  12. ZOCOR [Concomitant]
  13. INSULIN [Concomitant]
  14. DIOVAN [Concomitant]
  15. LEVAQUIN [Concomitant]
  16. INSPRA [Concomitant]
  17. ASPIRIN [Concomitant]
  18. METFORMIN [Concomitant]
  19. ZOROXOLYN [Concomitant]
  20. FLUOXETINE [Concomitant]
  21. NITREX [Concomitant]
  22. ALLOPURINOL [Concomitant]
  23. AMIODARONE HCL [Concomitant]

REACTIONS (19)
  - BLOOD GLUCOSE INCREASED [None]
  - CARDIAC FAILURE CONGESTIVE [None]
  - CORONARY ARTERY DISEASE [None]
  - CORONARY ARTERY OCCLUSION [None]
  - DIABETES MELLITUS [None]
  - DIABETES MELLITUS INADEQUATE CONTROL [None]
  - DIZZINESS [None]
  - DYSPNOEA [None]
  - ECONOMIC PROBLEM [None]
  - HYPOXIA [None]
  - INJURY [None]
  - MITRAL VALVE INCOMPETENCE [None]
  - MYOCARDIAL INFARCTION [None]
  - PAIN [None]
  - PULMONARY HYPERTENSION [None]
  - SLEEP APNOEA SYNDROME [None]
  - TRICUSPID VALVE INCOMPETENCE [None]
  - VENTRICULAR TACHYCARDIA [None]
  - WEIGHT INCREASED [None]
